FAERS Safety Report 21050524 (Version 2)
Quarter: 2022Q3

REPORT INFORMATION
  Report Type: Report from Study
  Country: CZ (occurrence: CZ)
  Receive Date: 20220707
  Receipt Date: 20220721
  Transmission Date: 20221027
  Serious: Yes (Other)
  Sender: FDA-Public Use
  Company Number: CZ-TEVA-2022-CZ-2053513

PATIENT
  Age: 31 Year
  Sex: Female
  Weight: 72 kg

DRUGS (6)
  1. FREMANEZUMAB [Suspect]
     Active Substance: FREMANEZUMAB
     Indication: Migraine
     Dosage: AUTOINJECTOR, 225MG MONTHLY, LAST DOSE PRIOR TO AE: 16-MAR-2022
     Route: 065
     Dates: start: 20210224
  2. SUMATRIPTAN [Concomitant]
     Active Substance: SUMATRIPTAN
     Indication: Headache
     Dosage: START DATE: -DEC-2012, THERAPY ONGOING
     Route: 048
  3. IBUPROFEN [Concomitant]
     Active Substance: IBUPROFEN
     Indication: Headache
     Dosage: START DATE: -DEC-2019, THERAPY ONGOING
     Route: 048
  4. ACETAMINOPHEN\CAFFEINE\GUAIFENESIN [Concomitant]
     Active Substance: ACETAMINOPHEN\CAFFEINE\GUAIFENESIN
     Indication: Headache
     Dosage: START DATE: --1996, THERAPY ONGOING
     Route: 048
  5. AZITHROMYCIN [Concomitant]
     Active Substance: AZITHROMYCIN
     Indication: Lyme disease
     Dosage: 1000 MILLIGRAM DAILY;
     Route: 048
     Dates: start: 20220429, end: 20220429
  6. AZITHROMYCIN [Concomitant]
     Active Substance: AZITHROMYCIN
     Dosage: 500 MILLIGRAM DAILY;
     Route: 048
     Dates: start: 20220430, end: 20220507

REACTIONS (1)
  - Haemorrhagic ovarian cyst [Recovering/Resolving]

NARRATIVE: CASE EVENT DATE: 20220324
